FAERS Safety Report 5714501-7 (Version None)
Quarter: 2008Q2

REPORT INFORMATION
  Report Type: 
  Country: None (occurrence: None)
  Receive Date: 20080423
  Receipt Date: 20080416
  Transmission Date: 20081010
  Serious: Yes (Other)
  Sender: FDA-Public Use
  Company Number: PHHY2008GB05920

PATIENT

DRUGS (6)
  1. RASILEZ [Suspect]
  2. INSULIN [Concomitant]
  3. METFORMIN HCL [Concomitant]
  4. AMLODIPINE [Concomitant]
  5. ROSUVASTATIN [Concomitant]
  6. IRBESARTAN [Concomitant]

REACTIONS (1)
  - HYPOGLYCAEMIA [None]
